FAERS Safety Report 24343492 (Version 1)
Quarter: 2024Q3

REPORT INFORMATION
  Report Type: Spontaneous
  Country: US (occurrence: None)
  Receive Date: 20240920
  Receipt Date: 20240920
  Transmission Date: 20241016
  Serious: No
  Sender: Public
  Company Number: None

PATIENT
  Sex: Female

DRUGS (2)
  1. REMODULIN [Suspect]
     Active Substance: TREPROSTINIL
     Indication: Pulmonary arterial hypertension
     Dosage: 76.97NG/KG/MIN  CONTINOUSLY UNDER THE SKIN?
     Route: 042
     Dates: start: 202104
  2. ADCIRCA [Concomitant]

REACTIONS (5)
  - Pain in jaw [None]
  - Diarrhoea [None]
  - Headache [None]
  - Product quality issue [None]
  - Product use issue [None]
